FAERS Safety Report 4394790-4 (Version None)
Quarter: 2004Q3

REPORT INFORMATION
  Report Type: 
  Country: None (occurrence: None)
  Receive Date: 20040706
  Receipt Date: 20040622
  Transmission Date: 20050211
  Serious: Yes (Hospitalization)
  Sender: FDA-Public Use
  Company Number: 04P-007-0264886-00

PATIENT
  Age: 58 Year
  Sex: Female
  Weight: 74 kg

DRUGS (2)
  1. HUMIRA [Suspect]
     Indication: RHEUMATOID ARTHRITIS
     Dosage: 40 MG, 1 IN 2 WK, SUBCUTANEOUS
     Route: 058
     Dates: start: 20040504, end: 20040518
  2. CORTISONE [Concomitant]

REACTIONS (14)
  - ABDOMINAL PAIN [None]
  - ANOREXIA [None]
  - ANURIA [None]
  - CHEST PAIN [None]
  - COUGH [None]
  - FAECALOMA [None]
  - LEUKOPENIA [None]
  - NEUROGENIC BLADDER [None]
  - PULMONARY EMBOLISM [None]
  - PYREXIA [None]
  - RENAL FAILURE ACUTE [None]
  - TREMOR [None]
  - UPPER RESPIRATORY TRACT INFECTION [None]
  - VOMITING [None]
